FAERS Safety Report 9648542 (Version 1)
Quarter: 2013Q4

REPORT INFORMATION
  Report Type: Spontaneous
  Country: US (occurrence: None)
  Receive Date: 20131024
  Receipt Date: 20131024
  Transmission Date: 20140711
  Serious: Yes (Other)
  Sender: FDA-Public Use
  Company Number: HA13-368-AE

PATIENT
  Age: 19 Year
  Sex: Female

DRUGS (1)
  1. TRAMADOL [Suspect]
     Route: 048

REACTIONS (2)
  - Victim of sexual abuse [None]
  - Toxicity to various agents [None]
